FAERS Safety Report 4876251-9 (Version None)
Quarter: 2006Q1

REPORT INFORMATION
  Report Type: 
  Country: None (occurrence: None)
  Receive Date: 20060110
  Receipt Date: 20060105
  Transmission Date: 20060701
  Serious: Yes (Hospitalization)
  Sender: FDA-Public Use
  Company Number: PHEH2006US00543

PATIENT
  Sex: Female

DRUGS (2)
  1. LOTENSIN [Suspect]
     Indication: HYPERTENSION
     Dosage: 40 MG, QD
     Dates: end: 20050201
  2. LOTENSIN [Suspect]
     Dosage: 40 MG, QD
     Dates: start: 20050301

REACTIONS (4)
  - AMPUTATION [None]
  - BLOOD CREATININE INCREASED [None]
  - IMPAIRED HEALING [None]
  - SKIN LESION [None]
